FAERS Safety Report 18208707 (Version 3)
Quarter: 2025Q3

REPORT INFORMATION
  Report Type: Spontaneous
  Country: US (occurrence: US)
  Receive Date: 20200828
  Receipt Date: 20250925
  Transmission Date: 20251020
  Serious: Yes (Disabling, Other)
  Sender: PURDUE
  Company Number: US-PURDUE-USA-2020-0163506

PATIENT
  Sex: Male

DRUGS (4)
  1. OXYCODONE HYDROCHLORIDE [Suspect]
     Active Substance: OXYCODONE HYDROCHLORIDE
     Indication: Back pain
     Route: 048
  2. ACETAMINOPHEN\OXYCODONE HYDROCHLORIDE [Suspect]
     Active Substance: ACETAMINOPHEN\OXYCODONE HYDROCHLORIDE
     Indication: Back pain
     Route: 048
  3. TRAMADOL [Suspect]
     Active Substance: TRAMADOL
     Indication: Back pain
     Route: 065
  4. ACETAMINOPHEN\OXYCODONE HYDROCHLORIDE\OXYCODONE TEREPHTHALATE [Suspect]
     Active Substance: ACETAMINOPHEN\OXYCODONE HYDROCHLORIDE\OXYCODONE TEREPHTHALATE
     Indication: Product used for unknown indication
     Route: 065

REACTIONS (12)
  - Tooth loss [Unknown]
  - Drug dependence [Unknown]
  - Aggression [Unknown]
  - Ageusia [Unknown]
  - Disturbance in attention [Unknown]
  - Abulia [Unknown]
  - General physical health deterioration [Unknown]
  - Weight decreased [Unknown]
  - Euphoric mood [Unknown]
  - Nausea [Unknown]
  - Drug withdrawal syndrome [Unknown]
  - Unevaluable event [Unknown]
